FAERS Safety Report 4849719-9 (Version None)
Quarter: 2005Q4

REPORT INFORMATION
  Report Type: 
  Country: None (occurrence: None)
  Receive Date: 20051115
  Receipt Date: 20050901
  Transmission Date: 20060501
  Serious: No
  Sender: FDA-Public Use
  Company Number: S05-USA-04232-01

PATIENT
  Age: 78 Year
  Sex: Male

DRUGS (4)
  1. NAMENDA [Suspect]
     Indication: DECREASED APPETITE
     Dosage: 15 MG QD PO
     Route: 048
     Dates: start: 20050818, end: 20050824
  2. NAMENDA [Suspect]
     Indication: DECREASED APPETITE
     Dosage: 5 MG QD PO
     Route: 048
     Dates: start: 20050804, end: 20050810
  3. NAMENDA [Suspect]
     Indication: DECREASED APPETITE
     Dosage: 5 MG BID PO
     Route: 048
     Dates: start: 20050811, end: 20050817
  4. ARICEPT [Concomitant]

REACTIONS (1)
  - ASTHENIA [None]
